FAERS Safety Report 8996874 (Version 1)
Quarter: 2012Q4

REPORT INFORMATION
  Report Type: Spontaneous
  Country: JP (occurrence: None)
  Receive Date: 20121221
  Receipt Date: 20121221
  Transmission Date: 20130627
  Serious: Yes (Other)
  Sender: FDA-Public Use
  Company Number: DSA_61414_2012

PATIENT
  Age: 54 Year
  Sex: Female

DRUGS (2)
  1. FLUOROURACIL (FLUOROURACIL) [Suspect]
     Route: 042
  2. UFT (UFT-TEGAFUR URACIL) 200 MG (NOT SPECIFIED) [Suspect]

REACTIONS (2)
  - Nausea [None]
  - Vomiting [None]
